FAERS Safety Report 14855946 (Version 1)
Quarter: 2018Q2

REPORT INFORMATION
  Report Type: Report from Study
  Country: US (occurrence: US)
  Receive Date: 20180507
  Receipt Date: 20180507
  Transmission Date: 20180711
  Serious: Yes (Hospitalization)
  Sender: FDA-Public Use
  Company Number: US-ACTELION-A-US2018-171708

PATIENT
  Age: 22 Year
  Sex: Male

DRUGS (7)
  1. MANNITOL. [Concomitant]
     Active Substance: MANNITOL
     Dosage: 360 MG, UNK
     Route: 048
     Dates: start: 20170808
  2. THYROID [Concomitant]
     Active Substance: LEVOTHYROXINE\LIOTHYRONINE
     Dosage: 1 DF, QD
     Route: 048
     Dates: start: 20160504
  3. ZAVESCA [Suspect]
     Active Substance: MIGLUSTAT
     Indication: LIPIDOSIS
     Dosage: 25 MG, BID
     Route: 048
     Dates: start: 20130904
  4. KEPPRA [Concomitant]
     Active Substance: LEVETIRACETAM
     Dosage: 500 MG, QD
     Route: 048
     Dates: start: 20171116
  5. DIAZEPAM. [Concomitant]
     Active Substance: DIAZEPAM
     Dosage: 1 DF, PRN
     Route: 048
     Dates: start: 20161008
  6. DICYCLOMINE [Concomitant]
     Active Substance: DICYCLOMINE HYDROCHLORIDE
     Dosage: 20 MG, PRN
     Route: 048
     Dates: start: 20170726
  7. ONFI [Concomitant]
     Active Substance: CLOBAZAM
     Dosage: 5 MG, BID
     Route: 048
     Dates: start: 20180425

REACTIONS (4)
  - Seizure [Unknown]
  - Wrong dose [Unknown]
  - Respiratory depression [Unknown]
  - Unresponsive to stimuli [Unknown]

NARRATIVE: CASE EVENT DATE: 20180408
